FAERS Safety Report 7191855-9 (Version None)
Quarter: 2010Q4

REPORT INFORMATION
  Report Type: 
  Country: None (occurrence: None)
  Receive Date: 20101223
  Receipt Date: 20101220
  Transmission Date: 20110411
  Serious: Yes (Other)
  Sender: FDA-Public Use
  Company Number: US-PFIZER INC-2010176019

PATIENT
  Sex: Female

DRUGS (1)
  1. LIPITOR [Suspect]
     Indication: BLOOD CHOLESTEROL ABNORMAL
     Dosage: 40 MG, DAILY
     Route: 048
     Dates: start: 19800101

REACTIONS (5)
  - ALOPECIA [None]
  - BLOOD CHOLESTEROL INCREASED [None]
  - MALABSORPTION [None]
  - SKIN DISORDER [None]
  - WEIGHT DECREASED [None]
